FAERS Safety Report 23729621 (Version 1)
Quarter: 2024Q2

REPORT INFORMATION
  Report Type: Spontaneous
  Country: US (occurrence: None)
  Receive Date: 20240410
  Receipt Date: 20240410
  Transmission Date: 20240716
  Serious: Yes (Hospitalization, Other)
  Sender: FDA-Public Use
  Company Number: US-Emmaus Medical, Inc.-EMM202402-000098

PATIENT
  Age: 29 Year
  Sex: Female

DRUGS (13)
  1. ENDARI [Suspect]
     Active Substance: GLUTAMINE
     Indication: Sickle cell anaemia with crisis
     Dosage: 10 G
     Route: 048
     Dates: start: 202310
  2. ENDARI [Suspect]
     Active Substance: GLUTAMINE
     Dosage: 10 G (5 G PACKET, TAKING 2 PACKETS)
     Route: 048
     Dates: start: 202311
  3. ENDARI [Suspect]
     Active Substance: GLUTAMINE
     Dosage: 10 G (5 G PACKET, TAKING 2 PACKETS)
     Route: 048
     Dates: start: 202312
  4. OXYCODONE [Concomitant]
     Active Substance: OXYCODONE\OXYCODONE HYDROCHLORIDE
     Indication: Product used for unknown indication
     Dosage: UNKNOWN
     Route: 065
  5. OXBRYTA [Concomitant]
     Active Substance: VOXELOTOR
     Indication: Product used for unknown indication
     Dosage: UNKNOWN
     Route: 065
  6. FOLVITE [Concomitant]
     Active Substance: FOLIC ACID
     Indication: Product used for unknown indication
     Dosage: UNKNOWN
     Route: 065
  7. FOLVITE [Concomitant]
     Active Substance: FOLIC ACID
     Dosage: 1 MG
     Route: 048
  8. IBUPROFEN [Concomitant]
     Active Substance: IBUPROFEN
     Indication: Product used for unknown indication
     Dosage: UNKNOWN
     Route: 065
  9. CLARITIN [Concomitant]
     Active Substance: LORATADINE
     Indication: Product used for unknown indication
     Dosage: 10 MG TABLET
     Route: 048
  10. NARCAN [Concomitant]
     Active Substance: NALOXONE HYDROCHLORIDE
     Indication: Product used for unknown indication
     Dosage: 4 MG/0.1 ML (1 SPRAY)
     Route: 045
  11. PROTONIX [Concomitant]
     Active Substance: PANTOPRAZOLE SODIUM
     Indication: Product used for unknown indication
     Dosage: 40 MG
     Route: 048
  12. SENNA GEN [Concomitant]
     Active Substance: SENNOSIDES
     Indication: Constipation
     Dosage: 8.6 MG
     Route: 048
  13. VOXELOTOR [Concomitant]
     Active Substance: VOXELOTOR
     Indication: Product used for unknown indication
     Dosage: 1,500 MG
     Route: 048

REACTIONS (7)
  - Acute respiratory failure [Recovered/Resolved]
  - Stress [Recovered/Resolved]
  - Cardiomegaly [Recovered/Resolved]
  - Sickle cell anaemia with crisis [Recovered/Resolved]
  - Hospitalisation [Unknown]
  - Emergency care [Unknown]
  - Product dose omission issue [Unknown]

NARRATIVE: CASE EVENT DATE: 20240217
